FAERS Safety Report 20260894 (Version 6)
Quarter: 2022Q1

REPORT INFORMATION
  Report Type: Other
  Country: CA (occurrence: None)
  Receive Date: 20211230
  Receipt Date: 20220323
  Transmission Date: 20220423
  Serious: Yes (Hospitalization, Other)
  Sender: FDA-Public Use
  Company Number: CA-ROCHE-2980318

PATIENT
  Sex: Male

DRUGS (3)
  1. OCREVUS [Suspect]
     Active Substance: OCRELIZUMAB
     Indication: Relapsing-remitting multiple sclerosis
     Dosage: 300 MG AT DAY 0 AND 14, THEN 600 MG EVERY 6 MONTH?LAST OCREVUS INFUSION (JULY 2, 2021)
     Route: 042
     Dates: start: 20210618
  2. REMERON [Concomitant]
     Active Substance: MIRTAZAPINE
  3. MEFLOQUINE [Concomitant]
     Active Substance: MEFLOQUINE
     Route: 048

REACTIONS (5)
  - Progressive multifocal leukoencephalopathy [Recovered/Resolved]
  - Asthenia [Not Recovered/Not Resolved]
  - Muscular weakness [Not Recovered/Not Resolved]
  - Speech disorder [Not Recovered/Not Resolved]
  - Multiple sclerosis relapse [Recovered/Resolved]
